FAERS Safety Report 16030178 (Version 1)
Quarter: 2019Q1

REPORT INFORMATION
  Report Type: Spontaneous
  Country: FR (occurrence: FR)
  Receive Date: 20190304
  Receipt Date: 20190304
  Transmission Date: 20190418
  Serious: Yes (Other)
  Sender: FDA-Public Use
  Company Number: FR-AMREGENT-20190354

PATIENT
  Age: 19 Year
  Sex: Female
  Weight: 78 kg

DRUGS (1)
  1. FERINJECT [Suspect]
     Active Substance: FERRIC CARBOXYMALTOSE
     Dosage: 1 GM, 1 TOTAL
     Route: 042
     Dates: start: 20190128, end: 20190129

REACTIONS (4)
  - Pruritus [Unknown]
  - Generalised oedema [Unknown]
  - Face oedema [Unknown]
  - Pain [Unknown]

NARRATIVE: CASE EVENT DATE: 20190128
